FAERS Safety Report 4375056-5 (Version None)
Quarter: 2004Q2

REPORT INFORMATION
  Report Type: 
  Country: None (occurrence: None)
  Receive Date: 20040603
  Receipt Date: 20040524
  Transmission Date: 20050107
  Serious: Yes (Other)
  Sender: FDA-Public Use
  Company Number: 205376

PATIENT
  Age: 42 Year
  Sex: Female
  Weight: 50 kg

DRUGS (12)
  1. MABTHERA (RITUXIMAB) CONC FOR SOLUTION FOR INFUSION [Suspect]
     Indication: THROMBOTIC THROMBOCYTOPENIC PURPURA
     Dosage: 550 MG, INTRAVENOUS
     Route: 042
     Dates: start: 20040311, end: 20040401
  2. BENZTHIAZIDE (BENZTHIAZIDE) [Concomitant]
  3. CO-DYDRAMOL (DIHYDROCODEINE BITARTRATE, ACETAMINOPHEN) [Concomitant]
  4. DIPYRIDAMOLE [Concomitant]
  5. ASPIRIN [Concomitant]
  6. TINZAPARIN (TINZAPARIN SODIUM) [Concomitant]
  7. OMEPRAZOLE [Concomitant]
  8. ATENOLOL [Concomitant]
  9. DIAMORPHINE (DIACETYLMORPHINE) [Concomitant]
  10. SENNA (SENNA) [Concomitant]
  11. CYCLIZINE (CYCLIZINE) [Concomitant]
  12. GAVISCON NOS (ANTACID NOS) [Concomitant]

REACTIONS (6)
  - BLOOD CALCIUM DECREASED [None]
  - BLOOD MAGNESIUM DECREASED [None]
  - CONDITION AGGRAVATED [None]
  - ELECTROENCEPHALOGRAM ABNORMAL [None]
  - HAEMOGLOBIN DECREASED [None]
  - MYOCLONUS [None]
